FAERS Safety Report 4323605-5 (Version None)
Quarter: 2004Q1

REPORT INFORMATION
  Report Type: 
  Country: None (occurrence: None)
  Receive Date: 20040322
  Receipt Date: 20040310
  Transmission Date: 20041129
  Serious: Yes (Hospitalization)
  Sender: FDA-Public Use
  Company Number: GB-JNJFOC-20040302452

PATIENT
  Age: 63 Year
  Sex: Female

DRUGS (8)
  1. REMICADE [Suspect]
     Indication: RHEUMATOID ARTHRITIS
     Dosage: 210 MG, INTRAVENOUS
     Route: 042
     Dates: start: 20021120, end: 20030301
  2. METFORMIN HCL [Concomitant]
  3. ASPIRIN [Concomitant]
  4. ATORVASTATIN CALCIUM [Concomitant]
  5. LISINOPRIL [Concomitant]
  6. CO-CODAMOL (PANADEINE CO) [Concomitant]
  7. INSULIN [Concomitant]
  8. FERROUS SULPHATE (FERROUS SULFATE) [Concomitant]

REACTIONS (1)
  - HYPOGLYCAEMIA [None]
